FAERS Safety Report 19759002 (Version 2)
Quarter: 2021Q3

REPORT INFORMATION
  Report Type: Spontaneous
  Country: US (occurrence: US)
  Receive Date: 20210827
  Receipt Date: 20210923
  Transmission Date: 20211014
  Serious: Yes (Other)
  Sender: FDA-Public Use
  Company Number: US-PFIZER INC-202101048084

PATIENT
  Age: 73 Year
  Sex: Female
  Weight: 72.57 kg

DRUGS (1)
  1. XELJANZ [Suspect]
     Active Substance: TOFACITINIB CITRATE
     Indication: DIARRHOEA
     Dosage: 10 MG

REACTIONS (4)
  - Deafness unilateral [Unknown]
  - Cerebrovascular accident [Unknown]
  - Body height decreased [Unknown]
  - Off label use [Unknown]
